FAERS Safety Report 7251237-8 (Version None)
Quarter: 2011Q1

REPORT INFORMATION
  Report Type: 
  Country: None (occurrence: None)
  Receive Date: 20110128
  Receipt Date: 20110114
  Transmission Date: 20110831
  Serious: Yes (Death)
  Sender: FDA-Public Use
  Company Number: GB-BAUSCH-2011BL000329

PATIENT
  Sex: Female

DRUGS (1)
  1. DEXAMETHASONE [Suspect]
     Indication: BRAIN OEDEMA
     Route: 048
     Dates: start: 20100101, end: 20100101

REACTIONS (3)
  - HYPERGLYCAEMIA [None]
  - BRAIN OEDEMA [None]
  - METABOLIC ACIDOSIS [None]
